FAERS Safety Report 6473760-6 (Version None)
Quarter: 2009Q4

REPORT INFORMATION
  Report Type: 
  Country: None (occurrence: None)
  Receive Date: 20091204
  Receipt Date: 20091123
  Transmission Date: 20100525
  Serious: Yes (Hospitalization)
  Sender: FDA-Public Use
  Company Number: FR-PFIZER INC-2009301378

PATIENT

DRUGS (1)
  1. PEGVISOMANT [Suspect]
     Dosage: UNK

REACTIONS (1)
  - EXERESIS [None]
